FAERS Safety Report 5280100-7 (Version None)
Quarter: 2007Q1

REPORT INFORMATION
  Report Type: 
  Country: None (occurrence: None)
  Receive Date: 20061229
  Receipt Date: 20061009
  Transmission Date: 20070707
  Serious: Yes (Other)
  Sender: FDA-Public Use
  Company Number: 2006UW19557

PATIENT
  Age: 44 Year
  Sex: Male
  Weight: 90.718 kg

DRUGS (5)
  1. CRESTOR [Suspect]
     Indication: HYPERCHOLESTEROLAEMIA
     Dosage: 10 MG PO
     Route: 048
     Dates: end: 20061001
  2. LOTREL [Concomitant]
  3. EFFEXOR [Concomitant]
     Indication: HYPERCHOLESTEROLAEMIA
     Dosage: 10 MG PO
     Route: 048
     Dates: end: 20061001
  4. LOTREL [Concomitant]
  5. EFFEXOR [Concomitant]

REACTIONS (1)
  - RENAL PAIN [None]
